FAERS Safety Report 17123155 (Version 1)
Quarter: 2019Q4

REPORT INFORMATION
  Report Type: Spontaneous
  Country: GB (occurrence: GB)
  Receive Date: 20191206
  Receipt Date: 20191206
  Transmission Date: 20200122
  Serious: Yes (Other)
  Sender: FDA-Public Use
  Company Number: GB-PFIZER INC-2019523925

PATIENT
  Age: 47 Year
  Sex: Male
  Weight: 82 kg

DRUGS (1)
  1. SILDENAFIL CITRATE. [Suspect]
     Active Substance: SILDENAFIL CITRATE
     Indication: ERECTILE DYSFUNCTION
     Dosage: 50 MG, AS NEEDED
     Route: 048
     Dates: start: 20170812, end: 20191110

REACTIONS (2)
  - Body temperature decreased [Recovered/Resolved with Sequelae]
  - Flushing [Unknown]

NARRATIVE: CASE EVENT DATE: 20191110
